FAERS Safety Report 26000007 (Version 2)
Quarter: 2025Q4

REPORT INFORMATION
  Report Type: Spontaneous
  Country: EU (occurrence: EU)
  Receive Date: 20251105
  Receipt Date: 20251203
  Transmission Date: 20260117
  Serious: Yes (Life-Threatening, Hospitalization, Other)
  Sender: AUROBINDO
  Company Number: EU-BAXTER-2025BAX022654

PATIENT
  Age: 71 Year
  Sex: Female
  Weight: 64 kg

DRUGS (8)
  1. CARBOPLATIN [Suspect]
     Active Substance: CARBOPLATIN
     Indication: Neoplasm malignant
     Dosage: DAY 1 OF A 28-DAY CYCLE; DOSE: AUCS
     Dates: start: 20250923, end: 20250923
  2. DOXORUBICIN [Suspect]
     Active Substance: DOXORUBICIN
     Indication: Ovarian cancer
     Dosage: 30 MILLIGRAM/SQ. METER (30 MG/M2, DAY 1 OF A 28-DAY CYCLE)
     Dates: start: 20250923, end: 20250923
  3. MIRVETUXIMAB SORAVTANSINE [4]
     Active Substance: MIRVETUXIMAB SORAVTANSINE
     Indication: Neoplasm malignant
     Dosage: UNK
  4. BEVACIZUMAB [Suspect]
     Active Substance: BEVACIZUMAB
     Indication: Neoplasm malignant
     Dosage: 10 MILLIGRAM/KILOGRAM (10 MG/KG, DAY 1 AND DAY 15 OF A 28-DAY CYCLE)
     Dates: start: 20250923, end: 20250923
  5. LOVASTATIN [Concomitant]
     Active Substance: LOVASTATIN
     Indication: Dyslipidaemia
     Dosage: 20 MILLIGRAM, ONCE A DAY (20 MG, QD)
     Route: 065
  6. TIMOLOL MALEATE [Concomitant]
     Active Substance: TIMOLOL MALEATE
     Indication: Glaucoma
     Dosage: 1 MILLIGRAM, ONCE A DAY (1 MG, QD)
  7. RAMIPRIL [Concomitant]
     Active Substance: RAMIPRIL
     Indication: Hypertension
     Dosage: 5 MILLIGRAM, ONCE A DAY (2.5 MG, BID)
     Route: 065
  8. ASPIRIN LYSINE [Concomitant]
     Active Substance: ASPIRIN LYSINE
     Indication: Hypertension
     Dosage: 75 KILOGRAM, ONCE A DAY (75 KG, QD)
     Route: 065

REACTIONS (3)
  - Thrombocytopenia [Recovered/Resolved]
  - Transaminases increased [Recovered/Resolved]
  - Abdominal pain [Recovering/Resolving]

NARRATIVE: CASE EVENT DATE: 20251006
